FAERS Safety Report 11114440 (Version 8)
Quarter: 2017Q2

REPORT INFORMATION
  Report Type: Report from Study
  Country: IT (occurrence: IT)
  Receive Date: 20150515
  Receipt Date: 20170421
  Transmission Date: 20170829
  Serious: Yes (Other)
  Sender: FDA-Public Use
  Company Number: IT-ROCHE-1575404

PATIENT
  Age: 84 Year
  Sex: Male

DRUGS (7)
  1. MINIAS [Concomitant]
     Active Substance: LORMETAZEPAM
     Indication: DEPRESSION
     Route: 048
  2. SALICYLIC ACID. [Concomitant]
     Active Substance: SALICYLIC ACID
     Dosage: SECONDARY PREVENTION IN CARDIOVASCULAR DISEASE
     Route: 048
  3. VEMURAFENIB [Suspect]
     Active Substance: VEMURAFENIB
     Route: 048
     Dates: start: 20150402
  4. VEMURAFENIB [Suspect]
     Active Substance: VEMURAFENIB
     Indication: MALIGNANT MELANOMA
     Dosage: 240 MG - FILM COATED TABLET - ORAL USE BLISTER PA
     Route: 048
     Dates: start: 20150319, end: 20150401
  5. LASIX [Concomitant]
     Active Substance: FUROSEMIDE
     Dosage: 25 MG TABLETS 30 TABLETS
     Route: 048
  6. LANSOX [Concomitant]
     Active Substance: LANSOPRAZOLE
     Indication: PROPHYLAXIS
     Route: 048
  7. TRITTICO [Concomitant]
     Active Substance: TRAZODONE HYDROCHLORIDE
     Indication: DEPRESSION
     Dosage: 50 MG FILM COATED TABLETS - 30 TABLETS
     Route: 048

REACTIONS (7)
  - Dermatitis bullous [Unknown]
  - Pyrexia [Not Recovered/Not Resolved]
  - Rash maculo-papular [Unknown]
  - Hyperuricaemia [Unknown]
  - Pyrexia [Unknown]
  - Erythema [Unknown]
  - Rash [Unknown]

NARRATIVE: CASE EVENT DATE: 20150329
